FAERS Safety Report 8435626-1 (Version None)
Quarter: 2012Q2

REPORT INFORMATION
  Report Type: 
  Country: None (occurrence: None)
  Receive Date: 20120614
  Receipt Date: 20120606
  Transmission Date: 20120825
  Serious: Yes (Other)
  Sender: FDA-Public Use
  Company Number: US-JNJFOC-20120604317

PATIENT
  Age: 47 Year
  Sex: Female

DRUGS (2)
  1. INVEGA SUSTENNA [Suspect]
     Indication: BORDERLINE PERSONALITY DISORDER
     Route: 030
     Dates: start: 20100101, end: 20120401
  2. INVEGA SUSTENNA [Suspect]
     Indication: BIPOLAR DISORDER
     Route: 030
     Dates: start: 20100101, end: 20120401

REACTIONS (1)
  - HYPERTENSION [None]
